FAERS Safety Report 6877095-9 (Version None)
Quarter: 2010Q3

REPORT INFORMATION
  Report Type: 
  Country: None (occurrence: None)
  Receive Date: 20100727
  Receipt Date: 20100713
  Transmission Date: 20110219
  Serious: Yes (Hospitalization)
  Sender: FDA-Public Use
  Company Number: US-WATSON-2010-09275

PATIENT
  Age: 62 Year
  Sex: Male

DRUGS (1)
  1. MINOXIDIL (WATSON LABORATORIES) [Suspect]
     Indication: HYPERTENSION
     Dosage: 10 - 20 MG, BID
     Route: 048

REACTIONS (1)
  - PLEURAL EFFUSION [None]
